FAERS Safety Report 13371307 (Version 1)
Quarter: 2017Q1

REPORT INFORMATION
  Report Type: Spontaneous
  Country: US (occurrence: US)
  Receive Date: 20170324
  Receipt Date: 20170324
  Transmission Date: 20170429
  Serious: Yes (Other)
  Sender: FDA-Public Use
  Company Number: US-ELI_LILLY_AND_COMPANY-US201608001288

PATIENT
  Sex: Female

DRUGS (2)
  1. CYMBALTA [Suspect]
     Active Substance: DULOXETINE HYDROCHLORIDE
     Indication: DEPRESSION
     Dosage: UNK, UNKNOWN
     Route: 065
     Dates: start: 2006, end: 20131222
  2. KLONOPIN [Concomitant]
     Active Substance: CLONAZEPAM
     Dosage: UNK, PRN
     Route: 065

REACTIONS (15)
  - Agitation [Unknown]
  - Drug withdrawal syndrome [Unknown]
  - Paraesthesia [Unknown]
  - Anxiety [Unknown]
  - Affect lability [Unknown]
  - Dyspnoea [Unknown]
  - Tremor [Unknown]
  - Asthenia [Unknown]
  - Dysphoria [Unknown]
  - Suicidal ideation [Unknown]
  - Sleep disorder [Unknown]
  - Feelings of worthlessness [Unknown]
  - Dizziness [Unknown]
  - Irritability [Unknown]
  - Influenza like illness [Unknown]
